FAERS Safety Report 7232608-2 (Version None)
Quarter: 2011Q1

REPORT INFORMATION
  Report Type: 
  Country: None (occurrence: None)
  Receive Date: 20110119
  Receipt Date: 20110114
  Transmission Date: 20110831
  Serious: Yes (Death, Other)
  Sender: FDA-Public Use
  Company Number: PHHY2010JP75364

PATIENT
  Sex: Female
  Weight: 45 kg

DRUGS (2)
  1. AFINITOR [Suspect]
     Indication: METASTATIC RENAL CELL CARCINOMA
     Dosage: 10 MG/DAY
     Route: 048
     Dates: start: 20100826, end: 20100925
  2. AFINITOR [Suspect]
     Dosage: 5 MG/DAY
     Route: 048
     Dates: start: 20100926, end: 20101010

REACTIONS (4)
  - RENAL DISORDER [None]
  - HYPERGLYCAEMIA [None]
  - RESPIRATORY DISORDER [None]
  - NEOPLASM MALIGNANT [None]
